FAERS Safety Report 8817156 (Version 1)
Quarter: 2012Q4

REPORT INFORMATION
  Report Type: Spontaneous
  Country: US (occurrence: None)
  Receive Date: 20121003
  Receipt Date: 20121003
  Transmission Date: 20130627
  Serious: No
  Sender: FDA-Public Use
  Company Number: None

PATIENT
  Age: 57 Year
  Sex: Male
  Weight: 89.5 kg

DRUGS (1)
  1. KETOROLAC TROMETHAMINE [Suspect]

REACTIONS (3)
  - Cough [None]
  - Wheezing [None]
  - Rash [None]
